FAERS Safety Report 9063109 (Version 1)
Quarter: 2013Q1

REPORT INFORMATION
  Report Type: Report from Study
  Country: US (occurrence: US)
  Receive Date: 20130131
  Receipt Date: 20130131
  Transmission Date: 20140127
  Serious: No
  Sender: FDA-Public Use
  Company Number: US-ABBOTT-12P-163-0990456-00

PATIENT
  Age: 66 Year
  Sex: Female

DRUGS (6)
  1. HUMIRA [Suspect]
     Indication: PSORIASIS
     Route: 058
     Dates: start: 20120707, end: 20120908
  2. HUMIRA [Suspect]
     Route: 058
     Dates: start: 20121027
  3. UNKNOWN MEDICATION [Concomitant]
     Indication: HYPERTENSION
  4. UNKNOWN MEDICATION [Concomitant]
     Indication: BLOOD CHOLESTEROL INCREASED
  5. UNKNOWN MEDICATION [Concomitant]
     Indication: DIURETIC THERAPY
  6. UNKNOWN POTASSIUM MEDICATION [Concomitant]
     Indication: BLOOD POTASSIUM

REACTIONS (7)
  - Drug dose omission [Unknown]
  - Skin infection [Recovered/Resolved]
  - Erythema [Recovering/Resolving]
  - Swelling [Recovering/Resolving]
  - Skin warm [Recovering/Resolving]
  - Blister [Recovering/Resolving]
  - Wound secretion [Recovering/Resolving]
